FAERS Safety Report 18279704 (Version 2)
Quarter: 2020Q4

REPORT INFORMATION
  Report Type: Report from Study
  Country: US (occurrence: US)
  Receive Date: 20200917
  Receipt Date: 20201001
  Transmission Date: 20210113
  Serious: Yes (Hospitalization)
  Sender: FDA-Public Use
  Company Number: US-VERTEX PHARMACEUTICALS-2020-018067

PATIENT
  Age: 17 Year
  Sex: Male
  Weight: 63.13 kg

DRUGS (1)
  1. VX-445/VX-661/VX-770 [Suspect]
     Active Substance: ELEXACAFTOR\IVACAFTOR\TEZACAFTOR
     Indication: CYSTIC FIBROSIS
     Dosage: 2 TAB (ELEX/TEZ/IVA) AM 1 TAB (IVA) PM
     Route: 048
     Dates: start: 20181031

REACTIONS (1)
  - Rhabdomyolysis [Recovered/Resolved]

NARRATIVE: CASE EVENT DATE: 20200904
